FAERS Safety Report 10110551 (Version 3)
Quarter: 2014Q2

REPORT INFORMATION
  Report Type: Spontaneous
  Country: US (occurrence: US)
  Receive Date: 20140425
  Receipt Date: 20140626
  Transmission Date: 20141212
  Serious: Yes (Death)
  Sender: FDA-Public Use
  Company Number: US-PURDUE-USA-2014-0113295

PATIENT
  Age: 92 Year
  Sex: Female

DRUGS (1)
  1. BUTRANS [Suspect]
     Indication: PAIN
     Dosage: UNK MCG/HR, WEEKLY
     Route: 062

REACTIONS (2)
  - Death [Fatal]
  - Confusional state [Unknown]
